FAERS Safety Report 8366821-8 (Version None)
Quarter: 2012Q1

REPORT INFORMATION
  Report Type: 
  Country: None (occurrence: None)
  Receive Date: 20120323
  Receipt Date: 20111116
  Transmission Date: 20120608
  Serious: Yes (Hospitalization, Disabling, Other)
  Sender: FDA-Public Use
  Company Number: 163-21880-11041343

PATIENT
  Age: 62 Year
  Sex: Female
  Weight: 81.6 kg

DRUGS (4)
  1. REVLIMID [Suspect]
     Indication: AMYLOIDOSIS
     Dosage: 10 MG, DAILY FOR 21 DAYS, PO, 5 MG, DAILY X 21 DAYS, HOLD FOR ONE WEEK, PO
     Route: 048
     Dates: start: 20110301
  2. REVLIMID [Suspect]
     Indication: AMYLOIDOSIS
     Dosage: 10 MG, DAILY FOR 21 DAYS, PO, 5 MG, DAILY X 21 DAYS, HOLD FOR ONE WEEK, PO
     Route: 048
     Dates: start: 20110301
  3. REVLIMID [Suspect]
  4. REVLIMID [Suspect]

REACTIONS (7)
  - HYPOXIA [None]
  - DIARRHOEA [None]
  - NAUSEA [None]
  - ASTHENIA [None]
  - GASTROOESOPHAGEAL REFLUX DISEASE [None]
  - DYSGEUSIA [None]
  - OEDEMA [None]
